FAERS Safety Report 4883091-3 (Version None)
Quarter: 2006Q1

REPORT INFORMATION
  Report Type: 
  Country: None (occurrence: None)
  Receive Date: 20060113
  Receipt Date: 20060105
  Transmission Date: 20060701
  Serious: Yes (Hospitalization, Other)
  Sender: FDA-Public Use
  Company Number: 2006-01-0242

PATIENT
  Age: 41 Year
  Sex: Female

DRUGS (1)
  1. CELESTONE [Suspect]
     Indication: BACK PAIN
     Dosage: 3 TABLETS QD ORAL
     Route: 048

REACTIONS (2)
  - NEUTROPHILIA [None]
  - PAIN IN EXTREMITY [None]
